FAERS Safety Report 8506823-1 (Version None)
Quarter: 2012Q3

REPORT INFORMATION
  Report Type: 
  Country: None (occurrence: None)
  Receive Date: 20120712
  Receipt Date: 20120704
  Transmission Date: 20120928
  Serious: Yes (Hospitalization, Other)
  Sender: FDA-Public Use
  Company Number: JP-VERTEX PHARMACEUTICALS INC.-AE-2012-000005

PATIENT
  Age: 66 Year
  Sex: Male

DRUGS (7)
  1. ASPIRIN [Concomitant]
     Route: 048
     Dates: end: 20111223
  2. FAMOTIDINE [Concomitant]
     Route: 048
     Dates: end: 20111223
  3. PREDNISOLONE [Concomitant]
     Route: 048
     Dates: end: 20111223
  4. PEGINTERFERON ALFA-2B [Concomitant]
     Indication: HEPATITIS C
     Route: 058
     Dates: start: 20111221, end: 20111221
  5. VERAPAMIL HCL [Concomitant]
     Route: 048
     Dates: end: 20111223
  6. TELAVIC (TELAPREVIR) [Suspect]
     Indication: HEPATITIS C
     Route: 048
     Dates: start: 20111221, end: 20111223
  7. RIBAVIRIN [Concomitant]
     Indication: HEPATITIS C
     Route: 048
     Dates: start: 20111221, end: 20111223

REACTIONS (6)
  - HEPATIC FUNCTION ABNORMAL [None]
  - MESENTERIC VEIN THROMBOSIS [None]
  - ILEAL ULCER PERFORATION [None]
  - ACIDOSIS [None]
  - RENAL IMPAIRMENT [None]
  - MALAISE [None]
